FAERS Safety Report 9055392 (Version 1)
Quarter: 2013Q1

REPORT INFORMATION
  Report Type: Other
  Country: IT (occurrence: IT)
  Receive Date: 20130206
  Receipt Date: 20130206
  Transmission Date: 20140127
  Serious: Yes (Hospitalization)
  Sender: FDA-Public Use
  Company Number: IT-WATSON-2013-01743

PATIENT
  Age: 945 None
  Sex: Female

DRUGS (5)
  1. PACLITAXEL [Suspect]
     Indication: PRODUCT USED FOR UNKNOWN INDICATION
     Dosage: 350 MG/KG, SINGLE
     Route: 042
     Dates: start: 20120726, end: 20120726
  2. CARBOPLATIN (ATLLC) [Suspect]
     Indication: PRODUCT USED FOR UNKNOWN INDICATION
     Dosage: 625 MG/KG, SINGLE
     Route: 042
     Dates: start: 20120726, end: 20120726
  3. AVASTIN [Suspect]
     Indication: PRODUCT USED FOR UNKNOWN INDICATION
     Dosage: 1485 MG/KG, SINGLE
     Route: 042
     Dates: start: 20120726, end: 20120726
  4. TRIATEC                            /00116401/ [Concomitant]
     Indication: PRODUCT USED FOR UNKNOWN INDICATION
     Dosage: UNK, UNKNOWN
     Route: 065
  5. BINOCRIT [Concomitant]
     Indication: PRODUCT USED FOR UNKNOWN INDICATION
     Dosage: UNK, UNKNOWN
     Route: 065

REACTIONS (19)
  - Hyperpyrexia [Unknown]
  - Leukopenia [Unknown]
  - Nausea [Unknown]
  - Azotaemia [None]
  - Activated partial thromboplastin time prolonged [None]
  - Blood chloride decreased [None]
  - Blood bilirubin increased [None]
  - Blood creatine phosphokinase increased [None]
  - Haematocrit decreased [None]
  - Haemoglobin decreased [None]
  - Blood lactate dehydrogenase increased [None]
  - Monocyte percentage increased [None]
  - Mean cell volume increased [None]
  - Lymphocyte count decreased [None]
  - Neutrophil count decreased [None]
  - Red blood cell anisocytes present [None]
  - Blood sodium decreased [None]
  - Red blood cell count decreased [None]
  - Blood glucose increased [None]
